FAERS Safety Report 9274678 (Version 1)
Quarter: 2013Q2

REPORT INFORMATION
  Report Type: Spontaneous
  Country: GB (occurrence: None)
  Receive Date: 20130429
  Receipt Date: 20130429
  Transmission Date: 20140414
  Serious: Yes (Hospitalization)
  Sender: FDA-Public Use
  Company Number: UK-LHC-2013020

PATIENT
  Age: 36 Year
  Sex: Male

DRUGS (1)
  1. CARBON DIOXIDE [Suspect]
     Indication: PNEUMOPERITONEUM
     Dosage: PROCEDURE TOOK 50 MINUTES

REACTIONS (1)
  - Intestinal ischaemia [None]
